FAERS Safety Report 16930468 (Version 2)
Quarter: 2020Q4

REPORT INFORMATION
  Report Type: Spontaneous
  Country: US (occurrence: US)
  Receive Date: 20191017
  Receipt Date: 20201123
  Transmission Date: 20210113
  Serious: Yes (Other)
  Sender: FDA-Public Use
  Company Number: US-PFIZER INC-2019447634

PATIENT
  Age: 58 Year
  Sex: Male

DRUGS (1)
  1. LYRICA [Suspect]
     Active Substance: PREGABALIN
     Dosage: 300 MG
     Dates: start: 2014

REACTIONS (5)
  - Therapeutic product effect incomplete [Unknown]
  - Knee deformity [Unknown]
  - Spinal cord injury [Unknown]
  - Oropharyngeal discomfort [Unknown]
  - Condition aggravated [Unknown]
